FAERS Safety Report 6253140-9 (Version None)
Quarter: 2009Q2

REPORT INFORMATION
  Report Type: 
  Country: None (occurrence: None)
  Receive Date: 20090629
  Receipt Date: 20090629
  Transmission Date: 20091009
  Serious: Yes (Life-Threatening, Hospitalization, Disabling, Other)
  Sender: FDA-Public Use
  Company Number: None

PATIENT
  Age: 80 Year
  Sex: Male
  Weight: 103.4201 kg

DRUGS (2)
  1. RISPERDAL [Suspect]
     Indication: EMOTIONAL DISTRESS
     Dosage: .5 MG 2X A DAY IV DRIP
     Route: 041
     Dates: start: 20090613, end: 20090625
  2. RISPERDAL [Suspect]
     Indication: SURGERY
     Dosage: .5 MG 2X A DAY IV DRIP
     Route: 041
     Dates: start: 20090613, end: 20090625

REACTIONS (12)
  - CONFUSIONAL STATE [None]
  - DYSKINESIA [None]
  - FATIGUE [None]
  - HEART RATE INCREASED [None]
  - IMMOBILE [None]
  - MUSCULAR WEAKNESS [None]
  - PAIN [None]
  - RESTLESSNESS [None]
  - SEDATION [None]
  - SPEECH DISORDER [None]
  - SYNCOPE [None]
  - TREMOR [None]
